FAERS Safety Report 19521167 (Version 1)
Quarter: 2021Q3

REPORT INFORMATION
  Report Type: Spontaneous
  Country: FR (occurrence: FR)
  Receive Date: 20210712
  Receipt Date: 20210712
  Transmission Date: 20211014
  Serious: Yes (Hospitalization, Other)
  Sender: FDA-Public Use
  Company Number: FR-MYLANLABS-2021M1041567

PATIENT
  Age: 20 Year
  Sex: Male
  Weight: 61 kg

DRUGS (1)
  1. PARACETAMOL [Suspect]
     Active Substance: ACETAMINOPHEN
     Indication: PRODUCT USED FOR UNKNOWN INDICATION
     Dosage: 10 GRAM, TOTAL
     Route: 048
     Dates: start: 20201223, end: 20201223

REACTIONS (2)
  - Analgesic drug level increased [Recovered/Resolved]
  - Poisoning deliberate [Unknown]

NARRATIVE: CASE EVENT DATE: 20201223
